FAERS Safety Report 16404218 (Version 1)
Quarter: 2019Q3

REPORT INFORMATION
  Report Type: Spontaneous
  Country: US (occurrence: US)
  Receive Date: 20190606
  Receipt Date: 20190606
  Transmission Date: 20191004
  Serious: No
  Sender: FDA-Public Use
  Company Number: None

PATIENT
  Age: 77 Year
  Sex: Female
  Weight: 57.6 kg

DRUGS (2)
  1. I HAVE ASTHMA SO TAKE MEDS FOR SUCH [Concomitant]
  2. RESTASIS [Suspect]
     Active Substance: CYCLOSPORINE

REACTIONS (1)
  - Instillation site pain [None]

NARRATIVE: CASE EVENT DATE: 20190606
